FAERS Safety Report 6901877-8 (Version None)
Quarter: 2010Q3

REPORT INFORMATION
  Report Type: 
  Country: None (occurrence: None)
  Receive Date: 20100803
  Receipt Date: 20080327
  Transmission Date: 20110219
  Serious: No
  Sender: FDA-Public Use
  Company Number: US-PFIZER INC-2008028414

PATIENT
  Sex: Female
  Weight: 69.1 kg

DRUGS (2)
  1. LYRICA [Suspect]
     Indication: FIBROMYALGIA
     Dates: start: 20080315
  2. MAGNESIUM [Concomitant]

REACTIONS (3)
  - HEADACHE [None]
  - MYALGIA [None]
  - PAIN IN EXTREMITY [None]
